FAERS Safety Report 11870639 (Version 2)
Quarter: 2016Q4

REPORT INFORMATION
  Report Type: Spontaneous
  Country: US (occurrence: US)
  Receive Date: 20151228
  Receipt Date: 20161219
  Transmission Date: 20170206
  Serious: Yes (Hospitalization)
  Sender: FDA-Public Use
  Company Number: US-SANOFI-AVENTIS-2012SA018152

PATIENT
  Age: 70 Year
  Sex: Female

DRUGS (41)
  1. PLAVIX [Suspect]
     Active Substance: CLOPIDOGREL BISULFATE
     Indication: CORONARY ARTERY DISEASE
     Route: 048
     Dates: start: 20000101, end: 201008
  2. AMBIEN [Concomitant]
     Active Substance: ZOLPIDEM TARTRATE
  3. VITAMIN C [Concomitant]
     Active Substance: ASCORBIC ACID
     Dosage: FREQUENCY: 1AM/1 BEDTIME
  4. GABAPENTIN. [Concomitant]
     Active Substance: GABAPENTIN
     Dosage: 30MG
  5. ISOSORBIDE. [Concomitant]
     Active Substance: ISOSORBIDE
  6. PRILOSEC [Concomitant]
     Active Substance: OMEPRAZOLE MAGNESIUM
  7. IRON [Concomitant]
     Active Substance: IRON
  8. SPIRIVA [Concomitant]
     Active Substance: TIOTROPIUM BROMIDE MONOHYDRATE
     Dosage: 18MG
  9. HYDROCODONE [Concomitant]
     Active Substance: HYDROCODONE
     Indication: PAIN
     Dosage: DOSE: UPTO 10
  10. WELLBUTRIN [Concomitant]
     Active Substance: BUPROPION HYDROCHLORIDE
     Dosage: FREQUENCY: QAM
  11. REMERON [Concomitant]
     Active Substance: MIRTAZAPINE
  12. PREVACID [Concomitant]
     Active Substance: LANSOPRAZOLE
  13. ALBUTEROL. [Concomitant]
     Active Substance: ALBUTEROL
  14. PLAVIX [Suspect]
     Active Substance: CLOPIDOGREL BISULFATE
     Indication: ARTERIOSCLEROSIS
     Route: 048
     Dates: start: 20000101, end: 201008
  15. PLAVIX [Suspect]
     Active Substance: CLOPIDOGREL BISULFATE
     Indication: ARTERIOSCLEROSIS
     Route: 048
  16. ASPIRIN. [Suspect]
     Active Substance: ASPIRIN
     Indication: PRODUCT USED FOR UNKNOWN INDICATION
     Dosage: 81 MG AND THEN 325 MG
     Route: 048
     Dates: start: 200001, end: 201008
  17. LIPITOR [Concomitant]
     Active Substance: ATORVASTATIN CALCIUM
     Dosage: 40MG
  18. ZANTAC [Concomitant]
     Active Substance: RANITIDINE HYDROCHLORIDE
     Dosage: 150MG
  19. ALTACE [Concomitant]
     Active Substance: RAMIPRIL
  20. VICODIN [Concomitant]
     Active Substance: ACETAMINOPHEN\HYDROCODONE BITARTRATE
  21. LOTREL [Concomitant]
     Active Substance: AMLODIPINE BESYLATE\BENAZEPRIL HYDROCHLORIDE
  22. ADVIL [Concomitant]
     Active Substance: IBUPROFEN
  23. MAGNESIUM [Concomitant]
     Active Substance: MAGNESIUM
  24. PROZAC [Concomitant]
     Active Substance: FLUOXETINE HYDROCHLORIDE
  25. VITAMIN D [Concomitant]
     Active Substance: CHOLECALCIFEROL
     Dosage: DOSE:4000 UNIT(S)
  26. COLACE [Concomitant]
     Active Substance: DOCUSATE SODIUM
  27. NEURONTIN [Concomitant]
     Active Substance: GABAPENTIN
     Dosage: LISTED AS 300 MG T.I.D AND 600 MG AT BEDTIME
  28. BENAZEPRIL [Concomitant]
     Active Substance: BENAZEPRIL HYDROCHLORIDE
     Dosage: 10MG
  29. CELEXA [Concomitant]
     Active Substance: CITALOPRAM HYDROBROMIDE
  30. CELEXA [Concomitant]
     Active Substance: CITALOPRAM HYDROBROMIDE
  31. ZESTRIL [Concomitant]
     Active Substance: LISINOPRIL
  32. FOSAMAX [Concomitant]
     Active Substance: ALENDRONATE SODIUM
  33. ZOLOFT [Concomitant]
     Active Substance: SERTRALINE HYDROCHLORIDE
     Route: 048
  34. CENTRUM SILVER [Concomitant]
     Active Substance: MINERALS\VITAMINS
     Dosage: FREQUENCY: 1 AM/ 1 BEDTIME
  35. CALCIUM CARBONATE. [Concomitant]
     Active Substance: CALCIUM CARBONATE
  36. PLAVIX [Suspect]
     Active Substance: CLOPIDOGREL BISULFATE
     Indication: CORONARY ARTERY DISEASE
     Route: 048
  37. ASPIRIN. [Suspect]
     Active Substance: ASPIRIN
     Indication: PRODUCT USED FOR UNKNOWN INDICATION
     Dosage: 81 MG AND THEN 325 MG
     Route: 048
  38. ASA [Concomitant]
     Active Substance: ASPIRIN
     Dosage: 325MG
  39. NEXIUM [Concomitant]
     Active Substance: ESOMEPRAZOLE MAGNESIUM
  40. LIPITOR [Concomitant]
     Active Substance: ATORVASTATIN CALCIUM
  41. TYLENOL [Concomitant]
     Active Substance: ACETAMINOPHEN

REACTIONS (5)
  - Dizziness [Unknown]
  - Gastrointestinal haemorrhage [Unknown]
  - Haemoglobin decreased [Unknown]
  - Melaena [Unknown]
  - Asthenia [Unknown]

NARRATIVE: CASE EVENT DATE: 20090201
